FAERS Safety Report 9037898 (Version 1)
Quarter: 2013Q1

REPORT INFORMATION
  Report Type: Spontaneous
  Country: US (occurrence: US)
  Receive Date: 20130129
  Receipt Date: 20130129
  Transmission Date: 20140127
  Serious: Yes (Hospitalization, Other)
  Sender: FDA-Public Use
  Company Number: US-ELI_LILLY_AND_COMPANY-US201301007307

PATIENT
  Age: 37 Year
  Sex: Female

DRUGS (3)
  1. OLANZAPINE [Suspect]
     Dosage: 1 DF, UNKNOWN
  2. OLANZAPINE [Suspect]
     Dosage: 7.5 MG, UNKNOWN
  3. FLUOXETINE HYDROCHLORIDE [Suspect]
     Indication: DEPRESSION
     Dosage: 1 DF, UNKNOWN

REACTIONS (2)
  - Acute hepatic failure [Unknown]
  - Hepatotoxicity [Unknown]
